FAERS Safety Report 8141712-6 (Version None)
Quarter: 2012Q1

REPORT INFORMATION
  Report Type: 
  Country: None (occurrence: None)
  Receive Date: 20120216
  Receipt Date: 20120214
  Transmission Date: 20120608
  Serious: Yes (Other)
  Sender: FDA-Public Use
  Company Number: AU-JNJFOC-20120208290

PATIENT
  Age: 39 Year
  Sex: Male

DRUGS (2)
  1. SUDAFED 12 HOUR [Suspect]
     Indication: PRODUCT USED FOR UNKNOWN INDICATION
     Dosage: REGULARLY ON A DAILY BASIS FOR QUITE A WHILE
     Route: 048
  2. SUDAFED 12 HOUR [Suspect]
     Route: 048

REACTIONS (2)
  - OVERDOSE [None]
  - DRUG ABUSE [None]
